FAERS Safety Report 10062294 (Version 1)
Quarter: 2014Q2

REPORT INFORMATION
  Report Type: Spontaneous
  Country: US (occurrence: US)
  Receive Date: 20140407
  Receipt Date: 20140407
  Transmission Date: 20141212
  Serious: No
  Sender: FDA-Public Use
  Company Number: US-GLAXOSMITHKLINE-A1054781A

PATIENT
  Age: 47 Year
  Sex: Female

DRUGS (10)
  1. BENLYSTA [Suspect]
     Indication: SYSTEMIC LUPUS ERYTHEMATOSUS
     Route: 042
     Dates: start: 20130911
  2. METHOTREXATE [Concomitant]
  3. BENADRYL [Concomitant]
  4. NORCO [Concomitant]
     Indication: PAIN
  5. NEURONTIN [Concomitant]
     Dosage: 600MG FOUR TIMES PER DAY
  6. FOLIC ACID [Concomitant]
     Dosage: 1MG PER DAY
  7. PLAQUENIL [Concomitant]
     Dosage: 200MG TWICE PER DAY
  8. VITAMIN D [Concomitant]
     Dosage: 400U PER DAY
  9. FENTANYL [Concomitant]
     Route: 062
  10. KLONOPIN [Concomitant]
     Dosage: 2MG FOUR TIMES PER DAY

REACTIONS (5)
  - Peripheral swelling [Unknown]
  - Pain [Unknown]
  - Erythema [Unknown]
  - Weight increased [Unknown]
  - Condition aggravated [Unknown]
